FAERS Safety Report 19919928 (Version 2)
Quarter: 2021Q4

REPORT INFORMATION
  Report Type: Spontaneous
  Country: JP (occurrence: JP)
  Receive Date: 20211005
  Receipt Date: 20211109
  Transmission Date: 20220303
  Serious: Yes (Other)
  Sender: FDA-Public Use
  Company Number: JP-PFIZER INC-202101245262

PATIENT
  Age: 59 Year

DRUGS (3)
  1. IBRANCE [Suspect]
     Active Substance: PALBOCICLIB
     Dosage: 125 MG, CYCLIC
  2. IBRANCE [Suspect]
     Active Substance: PALBOCICLIB
     Dosage: 100 MG, CYCLIC
  3. LETROZOLE [Concomitant]
     Active Substance: LETROZOLE

REACTIONS (3)
  - Myelosuppression [Unknown]
  - Neutrophil count decreased [Unknown]
  - White blood cell count decreased [Unknown]
